FAERS Safety Report 9509455 (Version 1)
Quarter: 2013Q3

REPORT INFORMATION
  Report Type: Spontaneous
  Country: US (occurrence: US)
  Receive Date: 20130909
  Receipt Date: 20130909
  Transmission Date: 20140515
  Serious: No
  Sender: FDA-Public Use
  Company Number: US-BRISTOL-MYERS SQUIBB COMPANY-17267774

PATIENT
  Sex: Female

DRUGS (12)
  1. ABILIFY [Suspect]
  2. XANAX [Concomitant]
  3. LUNESTA [Concomitant]
  4. TRAZODONE HCL [Concomitant]
  5. PANTOPRAZOLE [Concomitant]
  6. EXFORGE [Concomitant]
  7. CYMBALTA [Concomitant]
  8. LYRICA [Concomitant]
  9. VYTORIN [Concomitant]
  10. CELEBREX [Concomitant]
  11. MULTIGEN [Concomitant]
  12. HUMIRA [Concomitant]

REACTIONS (1)
  - Therapeutic response unexpected [Unknown]
